FAERS Safety Report 6189686-1 (Version None)
Quarter: 2009Q2

REPORT INFORMATION
  Report Type: 
  Country: None (occurrence: None)
  Receive Date: 20090514
  Receipt Date: 20070410
  Transmission Date: 20091009
  Serious: Yes (Hospitalization, Other)
  Sender: FDA-Public Use
  Company Number: US-ASTRAZENECA-2006UW24822

PATIENT
  Age: 14620 Day
  Sex: Female
  Weight: 75.5 kg

DRUGS (37)
  1. SEROQUEL [Suspect]
     Indication: DEPRESSION
     Route: 048
     Dates: start: 20040101
  2. SEROQUEL [Suspect]
     Indication: GENERALISED ANXIETY DISORDER
     Route: 048
     Dates: start: 20040101
  3. SEROQUEL [Suspect]
     Route: 048
     Dates: start: 20050323
  4. SEROQUEL [Suspect]
     Route: 048
     Dates: start: 20050323
  5. FUROSEMIDE [Concomitant]
     Route: 065
  6. GEMFIBROZIL [Concomitant]
     Route: 065
  7. COZAAR [Concomitant]
     Route: 065
  8. LORAZEPAM [Concomitant]
     Route: 065
  9. HYDROXYZ PAM [Concomitant]
     Route: 065
  10. LEXAPRO [Concomitant]
     Route: 065
  11. PROPO-N/APAP [Concomitant]
     Dosage: 100-650MG
     Route: 065
  12. CYCLOBENZAPRINE [Concomitant]
     Route: 065
  13. TRAZODONE HCL [Concomitant]
     Route: 065
  14. MUCINEX [Concomitant]
     Route: 065
  15. PROMETHAZINE [Concomitant]
     Route: 065
  16. GABAPENTIN [Concomitant]
     Route: 065
  17. WARFARIN SODIUM [Concomitant]
     Route: 065
  18. ACETAMINOPHEN AND HYDROCODONE BITARTRATE [Concomitant]
     Dosage: 5-500MG
     Route: 065
  19. APAP W/ CODEINE [Concomitant]
     Dosage: 300-30MG
     Route: 065
  20. ETODOLAC [Concomitant]
     Route: 065
  21. LISINOPRIL [Concomitant]
     Route: 065
  22. SIMVASTATIN [Concomitant]
     Route: 065
  23. HUMALOG [Concomitant]
     Route: 065
  24. LANTUS [Concomitant]
     Dosage: 35-80 UNITS
     Route: 065
  25. GLYBURIDE [Concomitant]
     Dosage: 2-5 MG
     Route: 065
  26. MORPHINE SULFATE [Concomitant]
     Route: 065
  27. REGULAR INSULIN [Concomitant]
     Route: 065
  28. PAXIL [Concomitant]
     Route: 065
  29. ASPIRIN [Concomitant]
     Route: 065
  30. TOPROL-XL [Concomitant]
     Route: 065
  31. MOTRIN [Concomitant]
     Route: 048
  32. METFORMIN HYDROCHLORIDE [Concomitant]
     Dosage: 500-1000 MG
     Route: 065
  33. LASIX [Concomitant]
     Route: 065
  34. VISTARIL [Concomitant]
     Route: 065
  35. HYDROXYZINE [Concomitant]
     Route: 065
  36. NOVOLIN [Concomitant]
     Dosage: 30-100 UNITS
     Route: 065
  37. EFFEXOR [Concomitant]
     Dosage: 75-150 MG
     Route: 048

REACTIONS (24)
  - AGRANULOCYTOSIS [None]
  - ANGINA PECTORIS [None]
  - ANXIETY DISORDER [None]
  - BLOOD GLUCOSE INCREASED [None]
  - CHEST PAIN [None]
  - COAGULOPATHY [None]
  - COSTOCHONDRITIS [None]
  - DEEP VEIN THROMBOSIS [None]
  - DIABETES MELLITUS [None]
  - DIABETIC RETINOPATHY [None]
  - ESSENTIAL HYPERTENSION [None]
  - HYPERGLYCAEMIA [None]
  - HYPERLIPIDAEMIA [None]
  - HYPERTRIGLYCERIDAEMIA [None]
  - MAJOR DEPRESSION [None]
  - METABOLIC DISORDER [None]
  - MYOPIA [None]
  - PAIN [None]
  - PAIN IN EXTREMITY [None]
  - PANIC DISORDER [None]
  - TYPE 2 DIABETES MELLITUS [None]
  - VENOUS INSUFFICIENCY [None]
  - VERTIGO POSITIONAL [None]
  - VOMITING [None]
